FAERS Safety Report 13189069 (Version 9)
Quarter: 2019Q1

REPORT INFORMATION
  Report Type: Report from Study
  Country: FR (occurrence: FR)
  Receive Date: 20170206
  Receipt Date: 20190226
  Transmission Date: 20190417
  Serious: Yes (Death, Life-Threatening, Hospitalization, Other)
  Sender: FDA-Public Use
  Company Number: FR-PFIZER INC-2017048297

PATIENT
  Age: 62 Year
  Sex: Female
  Weight: 52 kg

DRUGS (8)
  1. PALBOCICLIB [Suspect]
     Active Substance: PALBOCICLIB
     Dosage: UNK
     Route: 048
     Dates: start: 20170126, end: 20170126
  2. PALBOCICLIB [Suspect]
     Active Substance: PALBOCICLIB
     Dosage: 125 MG, 1X/DAY
     Route: 048
     Dates: start: 20161113
  3. FASLODEX [Suspect]
     Active Substance: FULVESTRANT
     Dosage: UNK
     Route: 030
     Dates: start: 201405, end: 201405
  4. CORTANCYL [Concomitant]
     Active Substance: PREDNISONE
     Dosage: 60 MG, DAILY
  5. FASLODEX [Suspect]
     Active Substance: FULVESTRANT
     Indication: BREAST CANCER METASTATIC
     Dosage: 500 MG, MONTHLY (ONCE EVERY 4 WEEKS)
     Route: 030
     Dates: start: 20161012, end: 20170126
  6. PALBOCICLIB [Suspect]
     Active Substance: PALBOCICLIB
     Indication: BREAST CANCER METASTATIC
     Dosage: 125 MG, 1X/DAY
     Route: 048
     Dates: start: 20161012, end: 20170124
  7. PALBOCICLIB [Suspect]
     Active Substance: PALBOCICLIB
     Dosage: 125 MG, 1X/DAY
     Route: 048
     Dates: start: 20170109, end: 20170124
  8. FASLODEX [Suspect]
     Active Substance: FULVESTRANT
     Dosage: UNK
     Route: 030
     Dates: start: 20170126, end: 20170126

REACTIONS (13)
  - Food aversion [Unknown]
  - Neutropenia [Recovered/Resolved]
  - Acute coronary syndrome [Fatal]
  - Gastric ulcer [Fatal]
  - Alanine aminotransferase increased [Unknown]
  - Haematemesis [Fatal]
  - Asthenia [Unknown]
  - Nausea [Unknown]
  - Gastrointestinal haemorrhage [Fatal]
  - Vomiting [Unknown]
  - Off label use [Unknown]
  - Aspartate aminotransferase increased [Unknown]
  - General physical health deterioration [Unknown]

NARRATIVE: CASE EVENT DATE: 201405
